FAERS Safety Report 23820906 (Version 1)
Quarter: 2024Q2

REPORT INFORMATION
  Report Type: Spontaneous
  Country: CA (occurrence: CA)
  Receive Date: 20240506
  Receipt Date: 20240506
  Transmission Date: 20240716
  Serious: Yes (Other)
  Sender: FDA-Public Use
  Company Number: CA-SANDOZ-SDZ2023CA017559

PATIENT
  Age: 39 Year

DRUGS (3)
  1. ELIDEL [Suspect]
     Active Substance: PIMECROLIMUS
     Indication: Chronic spontaneous urticaria
     Dosage: 1 %, QAM
     Route: 065
  2. ELIDEL [Suspect]
     Active Substance: PIMECROLIMUS
     Indication: Rosacea
  3. OMEPRAZOLE [Suspect]
     Active Substance: OMEPRAZOLE
     Indication: Chronic spontaneous urticaria
     Dosage: 20 MG
     Route: 065

REACTIONS (6)
  - Chronic cutaneous lupus erythematosus [Unknown]
  - Androgenetic alopecia [Unknown]
  - Rosacea [Unknown]
  - Lichen nitidus [Unknown]
  - Chronic spontaneous urticaria [Unknown]
  - Rash [Unknown]

NARRATIVE: CASE EVENT DATE: 20230719
